FAERS Safety Report 5175909-4 (Version None)
Quarter: 2006Q4

REPORT INFORMATION
  Report Type: 
  Country: None (occurrence: None)
  Receive Date: 20061215
  Receipt Date: 20061213
  Transmission Date: 20070319
  Serious: Yes (Other)
  Sender: FDA-Public Use
  Company Number: 2006R124496

PATIENT
  Sex: Female

DRUGS (1)
  1. CEFUROXIM-RATIOPHARM [Suspect]
     Indication: PYELONEPHRITIS
     Route: 048

REACTIONS (3)
  - DRUG EXPOSURE DURING PREGNANCY [None]
  - MUSCLE CONTRACTURE [None]
  - PSEUDOMEMBRANOUS COLITIS [None]
